FAERS Safety Report 9544242 (Version 2)
Quarter: 2013Q3

REPORT INFORMATION
  Report Type: Spontaneous
  Country: US (occurrence: US)
  Receive Date: 20130923
  Receipt Date: 20130923
  Transmission Date: 20140515
  Serious: Yes (Hospitalization)
  Sender: FDA-Public Use
  Company Number: US-SANOFI-AVENTIS-FABR-1003550

PATIENT
  Age: 63 Year
  Sex: Female
  Weight: 61 kg

DRUGS (23)
  1. FABRAZYME [Suspect]
     Indication: FABRY^S DISEASE
     Dosage: UNK
     Route: 042
     Dates: start: 20030226
  2. COUMADIN [Concomitant]
     Route: 048
  3. LOPRESSOR [Concomitant]
     Route: 048
  4. CRESTOR [Concomitant]
     Route: 048
  5. LASIX [Concomitant]
     Route: 048
  6. ARTIFICIAL TEARS [Concomitant]
     Route: 047
  7. LACRI-LUBE [Concomitant]
  8. PERCOCET [Concomitant]
     Indication: PAIN
     Route: 048
  9. LIDODERM [Concomitant]
  10. COLCHICINE [Concomitant]
     Route: 048
  11. CAPOTEN [Concomitant]
     Route: 048
  12. ZYLOPRIM [Concomitant]
     Route: 048
  13. LIPITOR [Concomitant]
     Route: 048
  14. PROTONIX [Concomitant]
     Route: 048
  15. PREDNISONE [Concomitant]
     Route: 048
  16. GENGRAF [Concomitant]
     Route: 048
  17. ASPIRIN [Concomitant]
     Route: 048
  18. NEPHROCAPS [Concomitant]
     Route: 048
  19. CALCIUM [Concomitant]
     Route: 048
  20. VITAMIN D3 [Concomitant]
     Route: 048
  21. FOSAMAX [Concomitant]
     Route: 048
  22. ADVAIR DISKUS [Concomitant]
     Route: 055
  23. FERROUS SULPHATE [Concomitant]
     Route: 048

REACTIONS (3)
  - Cardiac failure [Unknown]
  - Transaminases increased [Unknown]
  - Renal impairment [Recovered/Resolved with Sequelae]
